FAERS Safety Report 6418905-9 (Version None)
Quarter: 2009Q4

REPORT INFORMATION
  Report Type: 
  Country: None (occurrence: None)
  Receive Date: 20091028
  Receipt Date: 20091028
  Transmission Date: 20100525
  Serious: Yes (Other)
  Sender: FDA-Public Use
  Company Number: None

PATIENT
  Age: 50 Year
  Sex: Female
  Weight: 74.8435 kg

DRUGS (1)
  1. LAMISIL [Suspect]
     Indication: ONYCHOMYCOSIS
     Dosage: 250MG ONE DAILY
     Dates: start: 20090605, end: 20090625

REACTIONS (9)
  - CHROMATURIA [None]
  - CONSTIPATION [None]
  - DYSPNOEA [None]
  - FAECES DISCOLOURED [None]
  - JAUNDICE [None]
  - LETHARGY [None]
  - LIVER DISORDER [None]
  - NAUSEA [None]
  - PRURITUS [None]
